FAERS Safety Report 17619147 (Version 4)
Quarter: 2020Q2

REPORT INFORMATION
  Report Type: Spontaneous
  Country: US (occurrence: US)
  Receive Date: 20200402
  Receipt Date: 20200507
  Transmission Date: 20200713
  Serious: Yes (Death, Hospitalization)
  Sender: FDA-Public Use
  Company Number: US-CELGENEUS-USA-20200310635

PATIENT
  Age: 71 Year
  Sex: Female
  Weight: 45.8 kg

DRUGS (8)
  1. HYOSCYAMINE. [Concomitant]
     Active Substance: HYOSCYAMINE
     Indication: PRODUCT USED FOR UNKNOWN INDICATION
     Route: 003
     Dates: start: 202003
  2. ABRAXANE [Suspect]
     Active Substance: PACLITAXEL
     Indication: ADENOCARCINOMA
     Dosage: 178 MILLIGRAM
     Route: 041
     Dates: start: 20191111
  3. MORPHINE [Concomitant]
     Active Substance: MORPHINE
     Indication: PRODUCT USED FOR UNKNOWN INDICATION
     Route: 003
     Dates: start: 202003
  4. LORAZEPAM. [Concomitant]
     Active Substance: LORAZEPAM
     Indication: PRODUCT USED FOR UNKNOWN INDICATION
     Route: 003
     Dates: start: 202003
  5. ABRAXANE [Suspect]
     Active Substance: PACLITAXEL
     Dosage: 108 MILLIGRAM
     Route: 041
     Dates: start: 20200210, end: 20200210
  6. HALOPERIDOL. [Concomitant]
     Active Substance: HALOPERIDOL
     Indication: PRODUCT USED FOR UNKNOWN INDICATION
     Route: 003
     Dates: start: 202003
  7. ACETAMINOPHEN. [Concomitant]
     Active Substance: ACETAMINOPHEN
     Indication: PRODUCT USED FOR UNKNOWN INDICATION
     Route: 003
     Dates: start: 202003
  8. BISACODYL. [Concomitant]
     Active Substance: BISACODYL
     Indication: PRODUCT USED FOR UNKNOWN INDICATION
     Route: 003
     Dates: start: 202003

REACTIONS (2)
  - Hepatic failure [Fatal]
  - Fatigue [Not Recovered/Not Resolved]

NARRATIVE: CASE EVENT DATE: 202003
